FAERS Safety Report 20794065 (Version 1)
Quarter: 2022Q2

REPORT INFORMATION
  Report Type: Spontaneous
  Country: JP (occurrence: JP)
  Receive Date: 20220506
  Receipt Date: 20220506
  Transmission Date: 20220720
  Serious: Yes (Hospitalization, Other)
  Sender: FDA-Public Use
  Company Number: JP-JNJFOC-20220432008

PATIENT
  Age: 81 Year
  Sex: Male

DRUGS (7)
  1. REMINYL [Suspect]
     Active Substance: GALANTAMINE
     Indication: Dementia Alzheimer^s type
     Dosage: AFTER BREAKFAST,AFTER DINNER
     Route: 048
     Dates: start: 20200609
  2. RISPERDAL [Suspect]
     Active Substance: RISPERIDONE
     Indication: Anger
     Dosage: P.R.N, AFTER DINNER
     Route: 048
     Dates: start: 20210803
  3. TRAZODONE [Concomitant]
     Active Substance: TRAZODONE HYDROCHLORIDE
     Route: 048
     Dates: start: 20211027
  4. OLODATEROL HYDROCHLORIDE\TIOTROPIUM BROMIDE MONOHYDRATE [Concomitant]
     Active Substance: OLODATEROL HYDROCHLORIDE\TIOTROPIUM BROMIDE MONOHYDRATE
     Dosage: 2 INHALATIONS/TIME
     Route: 055
     Dates: start: 20210526
  5. MIYA-BM [Concomitant]
     Active Substance: CLOSTRIDIUM BUTYRICUM SPORES STRAIN M-55
     Dosage: AFTER EACH MEAL
     Route: 048
     Dates: start: 20211027
  6. HERBALS [Concomitant]
     Active Substance: HERBALS
     Dosage: BEFORE EACH MEAL
     Route: 048
     Dates: start: 20211027
  7. SENNOSIDES A AND B [Concomitant]
     Active Substance: SENNOSIDES A AND B
     Dosage: AT BEDTIME, SELF-REGULATION
     Route: 048
     Dates: start: 20211027

REACTIONS (9)
  - Enterocolitis [Unknown]
  - Ileus paralytic [Unknown]
  - Acquired haemophilia [Unknown]
  - Chronic obstructive pulmonary disease [Unknown]
  - Constipation [Unknown]
  - Depression [Unknown]
  - Inappropriate schedule of product administration [Unknown]
  - Product use in unapproved indication [Unknown]
  - Off label use [Unknown]

NARRATIVE: CASE EVENT DATE: 20210803
